FAERS Safety Report 7922229 (Version 5)
Quarter: 2012Q4

REPORT INFORMATION
  Report Type: 
  Country: US (occurrence: US)
  Receive Date: 20110429
  Receipt Date: 20121120
  Transmission Date: 20130627
  Serious: Yes (Other)
  Sender: FDA-Public Use
  Company Number: US-ASTRAZENECA-2011SE11401

PATIENT
  Age: 81 Year
  Sex: Female

DRUGS (3)
  1. NEXIUM [Suspect]
     Route: 048
  2. TOPROL XL [Suspect]
     Route: 048
  3. CRESTOR [Suspect]
     Route: 048

REACTIONS (6)
  - Gallbladder neoplasm [Unknown]
  - Ligament sprain [Unknown]
  - Fall [Unknown]
  - Vomiting [Recovered/Resolved]
  - Cholelithiasis [Unknown]
  - Adverse event [Unknown]
